FAERS Safety Report 24401218 (Version 3)
Quarter: 2025Q2

REPORT INFORMATION
  Report Type: Spontaneous
  Country: JP (occurrence: JP)
  Receive Date: 20241007
  Receipt Date: 20250622
  Transmission Date: 20250717
  Serious: Yes (Hospitalization, Other)
  Sender: BRISTOL-MYERS SQUIBB COMPANY
  Company Number: JP-BRISTOL-MYERS SQUIBB COMPANY-2024-156645

PATIENT
  Age: 67 Year
  Sex: Female

DRUGS (9)
  1. VIDAZA [Suspect]
     Active Substance: AZACITIDINE
     Indication: Myelodysplastic syndrome
     Route: 042
     Dates: start: 202210
  2. VIDAZA [Suspect]
     Active Substance: AZACITIDINE
     Indication: Acute myeloid leukaemia
     Route: 042
     Dates: start: 202404
  3. VIDAZA [Suspect]
     Active Substance: AZACITIDINE
     Route: 042
     Dates: start: 2024
  4. VYXEOS [Suspect]
     Active Substance: CYTARABINE\DAUNORUBICIN
     Indication: Acute myeloid leukaemia
     Route: 042
     Dates: start: 20240701, end: 20240705
  5. CYTARABINE [Suspect]
     Active Substance: CYTARABINE
     Indication: Acute myeloid leukaemia
     Route: 042
     Dates: start: 202405
  6. VENETOCLAX [Concomitant]
     Active Substance: VENETOCLAX
     Indication: Acute myeloid leukaemia
     Dates: start: 202404
  7. VENETOCLAX [Concomitant]
     Active Substance: VENETOCLAX
     Dates: start: 2024
  8. ACLARUBICIN HYDROCHLORIDE [Concomitant]
     Active Substance: ACLARUBICIN HYDROCHLORIDE
     Indication: Acute myeloid leukaemia
     Dates: start: 202405
  9. GRANULOCYTE COLONY-STIMULATING FACTOR NOS [Concomitant]
     Active Substance: GRANULOCYTE COLONY-STIMULATING FACTOR NOS
     Indication: Product used for unknown indication
     Dates: start: 202405

REACTIONS (4)
  - Hypoxia [Unknown]
  - Febrile neutropenia [Recovered/Resolved]
  - Acute myeloid leukaemia [Not Recovered/Not Resolved]
  - Therapeutic product effect incomplete [Not Recovered/Not Resolved]

NARRATIVE: CASE EVENT DATE: 20240401
